FAERS Safety Report 10185905 (Version 3)
Quarter: 2014Q2

REPORT INFORMATION
  Report Type: Spontaneous
  Country: DK (occurrence: DK)
  Receive Date: 20140521
  Receipt Date: 20140616
  Transmission Date: 20141212
  Serious: Yes (Life-Threatening, Hospitalization, Other)
  Sender: FDA-Public Use
  Company Number: DK-ACTAVIS-2014-10157

PATIENT
  Age: 72 Year
  Sex: Female
  Weight: 82 kg

DRUGS (8)
  1. ACETYLSALICYLIC ACID [Suspect]
     Indication: ISCHAEMIC HEART DISEASE PROPHYLAXIS
     Dosage: UNK
     Route: 065
  2. CLOPIDOGREL (UNKNOWN) [Suspect]
     Indication: PERCUTANEOUS CORONARY INTERVENTION
     Dosage: UNK
     Route: 048
     Dates: start: 20140409, end: 20140409
  3. ANGIOX [Suspect]
     Indication: PERCUTANEOUS CORONARY INTERVENTION
     Dosage: 1.4MG/KG/HR
     Route: 041
     Dates: start: 20140410, end: 20140410
  4. ANGIOX [Suspect]
     Dosage: UNK
     Route: 040
     Dates: start: 20140410, end: 20140410
  5. HYDROCHLOROTHIAZIDE [Concomitant]
     Indication: HYPERTENSION
     Dosage: UNK
     Route: 065
  6. LERCANIDIPINE [Concomitant]
     Indication: HYPERTENSION
     Dosage: UNK
     Route: 065
  7. LOSARTAN [Concomitant]
     Indication: HYPERTENSION
     Dosage: UNK
     Route: 065
  8. METOPROLOL [Concomitant]
     Indication: HYPERTENSION
     Dosage: UNK
     Route: 065

REACTIONS (3)
  - Coronary artery dissection [Recovered/Resolved]
  - Post procedural haemorrhage [Recovered/Resolved]
  - Ventricular fibrillation [Recovered/Resolved]
